FAERS Safety Report 4602598-7 (Version None)
Quarter: 2005Q1

REPORT INFORMATION
  Report Type: 
  Country: None (occurrence: None)
  Receive Date: 20050307
  Receipt Date: 20050223
  Transmission Date: 20050727
  Serious: Yes (Other)
  Sender: FDA-Public Use
  Company Number: 2005039327

PATIENT
  Age: 59 Year
  Sex: Male

DRUGS (2)
  1. PROVERA [Suspect]
     Indication: HORMONE REPLACEMENT THERAPY
     Dates: start: 19980801, end: 20030101
  2. PROVELLA-14 (ESTROGENS CONJUGATED, MEDROXYPROGESTERONE ACETATE) [Suspect]
     Indication: HORMONE REPLACEMENT THERAPY
     Dates: start: 19980801, end: 20030101

REACTIONS (1)
  - MYOCARDIAL INFARCTION [None]
